FAERS Safety Report 21976359 (Version 1)
Quarter: 2023Q1

REPORT INFORMATION
  Report Type: Spontaneous
  Country: US (occurrence: US)
  Receive Date: 20230210
  Receipt Date: 20230210
  Transmission Date: 20230418
  Serious: No
  Sender: FDA-Public Use
  Company Number: US-IBSA PHARMA INC.-2022IBS000127

PATIENT

DRUGS (2)
  1. TIROSINT-SOL [Suspect]
     Active Substance: LEVOTHYROXINE SODIUM
     Indication: Product used for unknown indication
     Dosage: 75 ?G, UNK
     Dates: start: 201902
  2. TIROSINT-SOL [Suspect]
     Active Substance: LEVOTHYROXINE SODIUM
     Dosage: 100 ?G, UNK

REACTIONS (5)
  - Sluggishness [Recovering/Resolving]
  - Feeling abnormal [Recovering/Resolving]
  - Drug effect less than expected [Unknown]
  - Fatigue [Recovering/Resolving]
  - Hot flush [Unknown]
